FAERS Safety Report 12663946 (Version 1)
Quarter: 2016Q3

REPORT INFORMATION
  Report Type: Spontaneous
  Country: CN (occurrence: CN)
  Receive Date: 20160818
  Receipt Date: 20160818
  Transmission Date: 20161109
  Serious: Yes (Other)
  Sender: FDA-Public Use
  Company Number: CN-PFIZER INC-2016390414

PATIENT
  Age: 87 Year
  Sex: Female
  Weight: 60 kg

DRUGS (7)
  1. AMIKACIN [Suspect]
     Active Substance: AMIKACIN
     Indication: URINARY TRACT INFECTION
     Dosage: 200 MG, 2X/DAY
     Route: 042
     Dates: start: 20160512, end: 20160513
  2. CINEPAZIDE [Concomitant]
     Indication: CEREBRAL INFARCTION
     Dosage: 320 MG, 1X/DAY
     Route: 042
     Dates: start: 20160510, end: 20160517
  3. CEFOTAXIME SODIUM W/SULBACTAM SODIUM [Suspect]
     Active Substance: CEFOTAXIME SODIUM\SULBACTAM SODIUM
     Indication: URINARY TRACT INFECTION
     Dosage: 3 G, 2X/DAY
     Route: 042
     Dates: start: 20160510, end: 20160512
  4. PIOGLITAZONE HYDROCHLORIDE. [Concomitant]
     Active Substance: PIOGLITAZONE HYDROCHLORIDE
     Indication: DIABETES MELLITUS
     Dosage: 7.5 MG, 1X/DAY
     Route: 048
     Dates: start: 20160509, end: 20160518
  5. DIOVAN [Concomitant]
     Active Substance: VALSARTAN
     Indication: HYPERTENSION
     Dosage: 80 MG, 1X/DAY
     Route: 048
     Dates: start: 20160509, end: 20160518
  6. DIFLUCAN [Suspect]
     Active Substance: FLUCONAZOLE
     Indication: URINARY TRACT INFECTION
     Dosage: 200 MG, 1X/DAY
     Route: 048
     Dates: start: 20160512, end: 20160513
  7. CONCOR [Concomitant]
     Active Substance: BISOPROLOL FUMARATE
     Indication: HYPERTENSION
     Dosage: 2.5 MG, 1X/DAY
     Route: 048
     Dates: start: 20160509, end: 20160518

REACTIONS (3)
  - Mental disorder [Recovered/Resolved]
  - Hallucination [Recovered/Resolved]
  - Delirium [Recovered/Resolved]

NARRATIVE: CASE EVENT DATE: 20160512
